FAERS Safety Report 5508418-0 (Version None)
Quarter: 2007Q4

REPORT INFORMATION
  Report Type: 
  Country: None (occurrence: None)
  Receive Date: 20071107
  Receipt Date: 20071026
  Transmission Date: 20080405
  Serious: Yes (Other)
  Sender: FDA-Public Use
  Company Number: HQWYE474414SEP05

PATIENT
  Sex: Female

DRUGS (7)
  1. PREMPRO [Suspect]
     Indication: HORMONE REPLACEMENT THERAPY
  2. PROVERA [Suspect]
  3. MEDROXYPROGESTERONE ACETATE [Suspect]
  4. ESTRADERM [Suspect]
  5. ESTROGEN NOS [Suspect]
  6. CONJUGATED ESTROGENS [Suspect]
  7. MEDROXYPROGESTERONE ACETATE [Suspect]

REACTIONS (1)
  - BREAST CANCER METASTATIC [None]
